FAERS Safety Report 23793291 (Version 2)
Quarter: 2024Q2

REPORT INFORMATION
  Report Type: Spontaneous
  Country: US (occurrence: US)
  Receive Date: 20240429
  Receipt Date: 20240509
  Transmission Date: 20240716
  Serious: No
  Sender: FDA-Public Use
  Company Number: US-AMGEN-USASP2024083406

PATIENT

DRUGS (1)
  1. RITUXIMAB [Suspect]
     Active Substance: RITUXIMAB
     Indication: Neutralising antibodies positive
     Dosage: UNK, Q6MO
     Route: 065

REACTIONS (4)
  - Rebound effect [Unknown]
  - Neutralising antibodies positive [Recovered/Resolved]
  - Off label use [Unknown]
  - Infection [Unknown]
